FAERS Safety Report 6495806-1 (Version None)
Quarter: 2009Q4

REPORT INFORMATION
  Report Type: 
  Country: None (occurrence: None)
  Receive Date: 20091214
  Receipt Date: 20090814
  Transmission Date: 20100525
  Serious: No
  Sender: FDA-Public Use
  Company Number: US-BRISTOL-MYERS SQUIBB COMPANY-14741078

PATIENT
  Age: 40 Year
  Sex: Female

DRUGS (7)
  1. ABILIFY [Suspect]
     Indication: MAJOR DEPRESSION
     Dosage: INITIAL DOSE: 2MG DAILY THEN INCREASED TO 5MG ON 12/2008  AND TO 10MG DAILY
     Dates: start: 20081101
  2. LEXAPRO [Concomitant]
  3. XANAX [Concomitant]
  4. WELLBUTRIN [Concomitant]
  5. ADDERALL XR 10 [Concomitant]
  6. ALBUTEROL [Concomitant]
  7. YAZ [Concomitant]

REACTIONS (1)
  - WEIGHT INCREASED [None]
